FAERS Safety Report 16599701 (Version 5)
Quarter: 2019Q3

REPORT INFORMATION
  Report Type: Spontaneous
  Country: DE (occurrence: DE)
  Receive Date: 20190720
  Receipt Date: 20190930
  Transmission Date: 20191004
  Serious: Yes (Hospitalization, Other)
  Sender: FDA-Public Use
  Company Number: DE-AUROBINDO-AUR-APL-2019-041610

PATIENT
  Age: 33 Year
  Sex: Male

DRUGS (16)
  1. CEFUROXIME FILM-COATED TABLET [Suspect]
     Active Substance: CEFUROXIME
     Indication: PRODUCT USED FOR UNKNOWN INDICATION
     Dosage: UNK (10 TABLETS NK MG)
     Route: 065
     Dates: start: 20171231, end: 20180105
  2. CEFUROXIME FILM-COATED TABLET [Suspect]
     Active Substance: CEFUROXIME
     Dosage: UNK
     Route: 065
     Dates: start: 20180320
  3. CIPROFLOXACIN. [Suspect]
     Active Substance: CIPROFLOXACIN
     Dosage: 250 MILLIGRAM Z (10 TABLETS)
     Route: 065
     Dates: start: 20180116, end: 20180121
  4. CEFUROXIME FILM-COATED TABLET [Suspect]
     Active Substance: CEFUROXIME
     Dosage: 500 MILLIGRAM (12 TABLETS)
     Route: 065
     Dates: start: 20180327
  5. LORAZEPAM. [Concomitant]
     Active Substance: LORAZEPAM
     Indication: PRODUCT USED FOR UNKNOWN INDICATION
     Dosage: NK MG, AB 29.04.2018
     Route: 065
     Dates: start: 20180429
  6. TAMSULOSIN [Concomitant]
     Active Substance: TAMSULOSIN
     Indication: PRODUCT USED FOR UNKNOWN INDICATION
     Dosage: UNK MG, .2017 - 05.01.2018
     Route: 065
     Dates: start: 2017
  7. DYSURGAL [Concomitant]
     Indication: PRODUCT USED FOR UNKNOWN INDICATION
     Dosage: 0.5 MILLIGRAM, (4 TABLETS)
     Route: 065
     Dates: start: 20180108
  8. MAGNESIUM [Suspect]
     Active Substance: MAGNESIUM
     Indication: PRODUCT USED FOR UNKNOWN INDICATION
     Dosage: UNK
     Route: 065
  9. CIPROFLOXACIN. [Suspect]
     Active Substance: CIPROFLOXACIN
     Dosage: 500 MILLIGRAM Z (10 TABLETS)
     Route: 065
     Dates: start: 20180205
  10. IBUPROFEN. [Concomitant]
     Active Substance: IBUPROFEN
     Indication: PRODUCT USED FOR UNKNOWN INDICATION
     Dosage: NK MG, AB 07.04.2018
     Route: 065
     Dates: start: 20180407
  11. FURADANTIN [Suspect]
     Active Substance: NITROFURANTOIN
     Dosage: 100 MILLIGRAM (4 TABLETS)
     Route: 065
     Dates: start: 20180310
  12. CEFUROXIME FILM-COATED TABLET [Suspect]
     Active Substance: CEFUROXIME
     Dosage: 500 MILLIGRAM, Z (12 TABLETS)
     Route: 065
     Dates: start: 20180320, end: 20180326
  13. CIPROFLOXACIN. [Suspect]
     Active Substance: CIPROFLOXACIN
     Indication: PRODUCT USED FOR UNKNOWN INDICATION
     Dosage: 250 MILLIGRAM, Z (9 TABLETS )
     Route: 065
     Dates: start: 20171227, end: 20171231
  14. FURADANTIN [Suspect]
     Active Substance: NITROFURANTOIN
     Indication: PRODUCT USED FOR UNKNOWN INDICATION
     Dosage: 100 MILLIGRAM Z (20 TABLETS)
     Route: 065
     Dates: start: 20180210, end: 20180220
  15. FURADANTIN [Suspect]
     Active Substance: NITROFURANTOIN
     Dosage: 100 MILLIGRAM
     Route: 065
     Dates: start: 20180220
  16. METAMIZOLE [Suspect]
     Active Substance: METAMIZOLE
     Indication: PRODUCT USED FOR UNKNOWN INDICATION
     Dosage: 500 MILLIGRAM, 08.01.2018 - 11.01.2018; 4 TABL
     Route: 065
     Dates: start: 20180108

REACTIONS (5)
  - Hallucination [Unknown]
  - Suicidal ideation [Unknown]
  - Fatigue [Unknown]
  - Muscular weakness [Unknown]
  - Arthralgia [Unknown]
